FAERS Safety Report 14386148 (Version 2)
Quarter: 2018Q1

REPORT INFORMATION
  Report Type: Spontaneous
  Country: US (occurrence: US)
  Receive Date: 20180115
  Receipt Date: 20180124
  Transmission Date: 20180509
  Serious: No
  Sender: FDA-Public Use
  Company Number: US-MERZ NORTH AMERICA, INC.-18MRZ-00027

PATIENT
  Sex: Female

DRUGS (2)
  1. SODIUM CHLORIDE. [Concomitant]
     Active Substance: SODIUM CHLORIDE
  2. XEOMIN [Suspect]
     Active Substance: INCOBOTULINUMTOXINA
     Indication: PRODUCT USED FOR UNKNOWN INDICATION
     Dates: start: 20171229, end: 20171229

REACTIONS (5)
  - Erythema [Recovered/Resolved]
  - Burning sensation [Unknown]
  - Swelling [Recovered/Resolved]
  - Urticaria [Recovered/Resolved]
  - Tenderness [Recovered/Resolved]
